FAERS Safety Report 23827616 (Version 1)
Quarter: 2024Q2

REPORT INFORMATION
  Report Type: Spontaneous
  Country: US (occurrence: None)
  Receive Date: 20240506
  Receipt Date: 20240506
  Transmission Date: 20240716
  Serious: Yes (Other)
  Sender: FDA-Public Use
  Company Number: None

PATIENT
  Age: 35 Year
  Sex: Female
  Weight: 67.5 kg

DRUGS (2)
  1. BUPROPION [Suspect]
     Active Substance: BUPROPION
     Indication: Anxiety
     Dosage: FREQUENCY : DAILY;?
     Route: 048
  2. BUPROPION [Suspect]
     Active Substance: BUPROPION
     Indication: Depression

REACTIONS (7)
  - Tremor [None]
  - Anger [None]
  - Agitation [None]
  - Feeling abnormal [None]
  - Feeling abnormal [None]
  - Headache [None]
  - Recalled product [None]

NARRATIVE: CASE EVENT DATE: 20240401
